FAERS Safety Report 19405076 (Version 1)
Quarter: 2021Q2

REPORT INFORMATION
  Report Type: Spontaneous
  Country: DE (occurrence: DE)
  Receive Date: 20210611
  Receipt Date: 20210611
  Transmission Date: 20210717
  Serious: Yes (Other)
  Sender: FDA-Public Use
  Company Number: DE-AUROBINDO-AUR-APL-2021-024083

PATIENT
  Age: 77 Year
  Sex: Female
  Weight: 66 kg

DRUGS (38)
  1. UNACID [Concomitant]
     Indication: INFECTION
     Dosage: 3 GRAM, ONCE A DAY
     Route: 042
     Dates: start: 20210113, end: 20210115
  2. LOPERAMIDE [Concomitant]
     Active Substance: LOPERAMIDE
     Indication: DIARRHOEA
     Dosage: 1.86 MILLIGRAM (AS NECESSARY)
     Route: 048
     Dates: start: 20200903
  3. DEXAMETHASONE. [Concomitant]
     Active Substance: DEXAMETHASONE
     Indication: PRODUCT USED FOR UNKNOWN INDICATION
     Dosage: 8 MILLIGRAM (CYCLICAL)
     Route: 042
     Dates: start: 20200902
  4. NOVAMIN [Concomitant]
     Indication: PAIN
     Dosage: 2000 MILLIGRAM, ONCE A DAY
     Route: 048
     Dates: start: 2020
  5. OXALIPLATIN. [Suspect]
     Active Substance: OXALIPLATIN
     Dosage: 144 MILLIGRAM
     Route: 065
     Dates: start: 20200916
  6. VECTIBIX [Suspect]
     Active Substance: PANITUMUMAB
     Indication: PRODUCT USED FOR UNKNOWN INDICATION
     Dosage: 360 MILLIGRAM
     Route: 042
     Dates: start: 20210324
  7. STANGYL [Concomitant]
     Active Substance: TRIMIPRAMINE MALEATE
     Indication: DEPRESSION
     Dosage: 100 MILLIGRAM, ONCE A DAY
     Route: 048
  8. PANTOZOLE [Concomitant]
     Active Substance: PANTOPRAZOLE SODIUM
     Indication: CHRONIC GASTRITIS
     Dosage: 40 MILLIGRAM, ONCE A DAY
     Route: 048
     Dates: start: 20200910
  9. MAGNETRANS FORTE [Concomitant]
     Active Substance: MAGNESIUM OXIDE
     Indication: HYPOMAGNESAEMIA
     Dosage: 300 MILLIGRAM, ONCE A DAY
     Route: 048
     Dates: start: 20201118
  10. METOPROLOL. [Concomitant]
     Active Substance: METOPROLOL
     Indication: HYPERTENSION
     Dosage: 50 MILLIGRAM, ONCE A DAY
     Route: 048
     Dates: start: 2020
  11. VERGENTAN [Concomitant]
     Active Substance: ALIZAPRIDE HYDROCHLORIDE
     Indication: NAUSEA
     Dosage: 50 MILLIGRAM (AS NECESSARY)
     Route: 048
     Dates: start: 20200910
  12. FLUOROURACIL. [Suspect]
     Active Substance: FLUOROURACIL
     Indication: COLORECTAL CANCER METASTATIC
     Dosage: 4080 MILLIGRAM
     Route: 042
     Dates: start: 20200902
  13. FLUOROURACIL. [Suspect]
     Active Substance: FLUOROURACIL
     Indication: PRODUCT USED FOR UNKNOWN INDICATION
     Dosage: 3840 MILLIGRAM
     Route: 042
     Dates: start: 20210324
  14. ATROPINE. [Concomitant]
     Active Substance: ATROPINE
     Indication: PRODUCT USED FOR UNKNOWN INDICATION
     Dosage: 0.25 MILLIGRAM (CYCLICAL)
     Route: 058
     Dates: start: 20201209
  15. POTASSIUM [Concomitant]
     Active Substance: POTASSIUM
     Indication: HYPOKALAEMIA
     Dosage: 20 MILLILITER (AS NECESSARY)
     Route: 042
     Dates: start: 20201112, end: 20201118
  16. MOVICOL [Concomitant]
     Active Substance: POLYETHYLENE GLYCOL 3350\POTASSIUM CHLORIDE\SODIUM BICARBONATE\SODIUM CHLORIDE
     Indication: PRODUCT USED FOR UNKNOWN INDICATION
     Dosage: 13 GRAM (AS NECESSARY)
     Route: 048
     Dates: start: 20210120
  17. MCP [Concomitant]
     Active Substance: METOCLOPRAMIDE HYDROCHLORIDE
     Indication: NAUSEA
     Dosage: 10 MILLIGRAM (AS NECESSARY)
     Route: 048
     Dates: start: 20200902
  18. LAXOBERAL [Concomitant]
     Active Substance: SODIUM PICOSULFATE
     Indication: CONSTIPATION
     Dosage: UNK (15 DROP, AS NECESSARY)
     Route: 048
     Dates: start: 20210120
  19. FOLINIC ACID [Suspect]
     Active Substance: LEUCOVORIN
     Dosage: 640 MILLIGRAM
     Route: 065
     Dates: start: 20210324
  20. OXALIPLATIN. [Suspect]
     Active Substance: OXALIPLATIN
     Indication: COLORECTAL CANCER METASTATIC
     Dosage: 115 MILLIGRAM
     Route: 065
     Dates: start: 20200902
  21. PREDNISOLONE. [Concomitant]
     Active Substance: PREDNISOLONE
     Indication: BRONCHOSPASM
     Dosage: 200 MILLIGRAM, ONCE A DAY
     Route: 042
     Dates: start: 20201028, end: 20201028
  22. IRINOTECAN [Concomitant]
     Active Substance: IRINOTECAN
     Indication: PRODUCT USED FOR UNKNOWN INDICATION
     Dosage: UNK (288?300 MILLIGRAM, CYCLICAL)
     Route: 042
     Dates: start: 20201209
  23. RIOPAN [Concomitant]
     Indication: ABDOMINAL PAIN UPPER
     Dosage: 10 MILLILITER (AS NECESSARY)
     Route: 048
     Dates: start: 20201014
  24. FOLINIC ACID [Suspect]
     Active Substance: LEUCOVORIN
     Indication: COLORECTAL CANCER METASTATIC
     Dosage: 680 MILLIGRAM
     Route: 065
     Dates: start: 20200902
  25. CALCIUM [Concomitant]
     Active Substance: CALCIUM
     Indication: HYPOCALCAEMIA
     Dosage: 100 MILLIGRAM, ONCE A DAY
     Route: 048
     Dates: start: 20201118
  26. ALPHA LIPON [Concomitant]
     Indication: TREMOR
     Dosage: 600 MILLIGRAM
     Route: 048
     Dates: start: 20210210
  27. MINOCYCLINE [Concomitant]
     Active Substance: MINOCYCLINE HYDROCHLORIDE
     Indication: PRODUCT USED FOR UNKNOWN INDICATION
     Dosage: 100 MILLIGRAM, ONCE A DAY
     Route: 048
     Dates: start: 20200902
  28. AKYNZEO [Concomitant]
     Active Substance: NETUPITANT\PALONOSETRON HYDROCHLORIDE
     Indication: PRODUCT USED FOR UNKNOWN INDICATION
     Dosage: 300 MILLIGRAM (CYCLICAL)
     Route: 048
     Dates: start: 20200902
  29. VECTIBIX [Suspect]
     Active Substance: PANITUMUMAB
     Indication: COLORECTAL CANCER METASTATIC
     Dosage: 400 MILLIGRAM
     Route: 042
     Dates: start: 20200902
  30. SIMVASTATIN. [Concomitant]
     Active Substance: SIMVASTATIN
     Indication: METABOLIC DISORDER
     Dosage: 20 MILLIGRAM, ONCE A DAY
     Route: 048
  31. ONDANSETRON [Concomitant]
     Active Substance: ONDANSETRON
     Indication: NAUSEA
     Dosage: 8 MILLIGRAM, ONCE A DAY
     Route: 042
     Dates: start: 20201111
  32. POTASSIUM [Concomitant]
     Active Substance: POTASSIUM
     Dosage: UNK (9999)
     Route: 065
     Dates: start: 20210113, end: 20210118
  33. CALCIGEN D3 [Concomitant]
     Indication: HYPOCALCAEMIA
     Dosage: 2500 MILLIGRAM, ONCE A DAY
     Route: 048
     Dates: start: 20201123
  34. CEFPODOXIME [Concomitant]
     Active Substance: CEFPODOXIME
     Indication: C-REACTIVE PROTEIN INCREASED
     Dosage: 400 MILLIGRAM, ONCE A DAY
     Route: 048
     Dates: start: 20201112, end: 20201117
  35. MINERALS NOS;VITAMINS NOS [Concomitant]
     Active Substance: MINERALS\VITAMINS
     Indication: WEIGHT DECREASED
     Dosage: 125 MILLILITER (AS NECESSARY)
     Route: 048
     Dates: start: 20210120
  36. BRICANYL [Concomitant]
     Active Substance: TERBUTALINE SULFATE
     Indication: BRONCHOSPASM
     Dosage: 0.5 MILLIGRAM, ONCE A DAY
     Route: 058
     Dates: start: 20201028, end: 20201028
  37. JONOSTERIL [Concomitant]
     Indication: BLOOD CREATININE INCREASED
     Dosage: 1 UNK, ONCE A DAY (500?1500 MILLILITER)
     Route: 042
     Dates: start: 20201104
  38. AMLODIPINE [Concomitant]
     Active Substance: AMLODIPINE BESYLATE
     Indication: HYPERTENSION
     Dosage: 2.5 MILLIGRAM, ONCE A DAY
     Route: 048
     Dates: start: 2020, end: 20210118

REACTIONS (1)
  - Cachexia [Not Recovered/Not Resolved]

NARRATIVE: CASE EVENT DATE: 20210505
